FAERS Safety Report 15826295 (Version 6)
Quarter: 2022Q3

REPORT INFORMATION
  Report Type: Spontaneous
  Country: PT (occurrence: PT)
  Receive Date: 20190115
  Receipt Date: 20220727
  Transmission Date: 20221027
  Serious: Yes (Life-Threatening, Hospitalization, Other)
  Sender: FDA-Public Use
  Company Number: PHHY2019PT004305

PATIENT
  Age: 73 Year
  Sex: Female

DRUGS (2)
  1. AMOXICILLIN\CLAVULANATE POTASSIUM [Suspect]
     Active Substance: AMOXICILLIN\CLAVULANATE POTASSIUM
     Indication: Pneumonia
     Dosage: 1 DF, ONCE/SINGLE (FIRST ADMINISTRATION WAS BY THE INTRAVENOUS ROUTE IN THE EMERGENCY DEPARTMENT)
     Route: 042
  2. INSULIN NOS [Concomitant]
     Active Substance: INSULIN NOS
     Indication: Type 2 diabetes mellitus
     Dosage: UNK
     Route: 065

REACTIONS (17)
  - Kounis syndrome [Recovering/Resolving]
  - Cardio-respiratory arrest [Recovering/Resolving]
  - Anaphylactic reaction [Recovering/Resolving]
  - Arteriosclerosis [Recovering/Resolving]
  - Shock [Recovering/Resolving]
  - Electrocardiogram ST segment elevation [Recovered/Resolved]
  - Rash [Recovering/Resolving]
  - Altered state of consciousness [Recovering/Resolving]
  - Arteriospasm coronary [Recovering/Resolving]
  - Tachycardia [Unknown]
  - Blood creatine phosphokinase increased [Unknown]
  - Anaphylactic shock [Unknown]
  - Tryptase increased [Unknown]
  - Hypotension [Unknown]
  - Troponin increased [Unknown]
  - Blood creatine phosphokinase MB [Unknown]
  - Oxygen saturation decreased [Unknown]
